FAERS Safety Report 18452945 (Version 4)
Quarter: 2021Q4

REPORT INFORMATION
  Report Type: Spontaneous
  Country: US (occurrence: US)
  Receive Date: 20201102
  Receipt Date: 20211206
  Transmission Date: 20220304
  Serious: Yes (Other)
  Sender: FDA-Public Use
  Company Number: US-PFIZER INC-2020423763

PATIENT
  Age: 52 Year
  Sex: Female
  Weight: 72.57 kg

DRUGS (3)
  1. EFFEXOR XR [Suspect]
     Active Substance: VENLAFAXINE HYDROCHLORIDE
     Indication: Hot flush
     Dosage: UNK
  2. EFFEXOR XR [Suspect]
     Active Substance: VENLAFAXINE HYDROCHLORIDE
     Indication: Facial pain
     Dosage: 75 MG, 1X/DAY (75 MG AT NIGHT)
  3. EFFEXOR XR [Suspect]
     Active Substance: VENLAFAXINE HYDROCHLORIDE
     Indication: Swelling face

REACTIONS (7)
  - Autoimmune disorder [Unknown]
  - Malaise [Unknown]
  - Skin burning sensation [Unknown]
  - Pain [Unknown]
  - Impaired work ability [Unknown]
  - Drug effective for unapproved indication [Unknown]
  - Off label use [Unknown]
